FAERS Safety Report 17509008 (Version 1)
Quarter: 2020Q1

REPORT INFORMATION
  Report Type: Spontaneous
  Country: MX (occurrence: MX)
  Receive Date: 20200306
  Receipt Date: 20200306
  Transmission Date: 20200409
  Serious: Yes (Death, Other)
  Sender: FDA-Public Use
  Company Number: MX-PFIZER INC-2020082241

PATIENT
  Age: 75 Year
  Sex: Female

DRUGS (2)
  1. LYRICA [Suspect]
     Active Substance: PREGABALIN
     Indication: SCOLIOSIS
  2. LYRICA [Suspect]
     Active Substance: PREGABALIN
     Indication: OSTEOPOROSIS
     Dosage: 150 MG, UNK

REACTIONS (9)
  - Bone pain [Unknown]
  - Liver disorder [Unknown]
  - Dry mouth [Unknown]
  - Product use in unapproved indication [Unknown]
  - Drug effective for unapproved indication [Unknown]
  - Fall [Unknown]
  - Off label use [Unknown]
  - Myocardial infarction [Fatal]
  - Asthenia [Unknown]
